FAERS Safety Report 5588574-9 (Version None)
Quarter: 2008Q1

REPORT INFORMATION
  Report Type: 
  Country: None (occurrence: None)
  Receive Date: 20080111
  Receipt Date: 20080103
  Transmission Date: 20080703
  Serious: Yes (Death)
  Sender: FDA-Public Use
  Company Number: US-SANOFI-SYNTHELABO-A03200800038

PATIENT
  Sex: Male
  Weight: 78 kg

DRUGS (2)
  1. SOMETHING FOR BLOOD PRESSURE [Concomitant]
     Indication: HYPERTENSION
     Dosage: UNK
     Route: 065
  2. PLAVIX [Suspect]
     Indication: STENT PLACEMENT
     Route: 048

REACTIONS (2)
  - BRONCHITIS [None]
  - DEATH [None]
